FAERS Safety Report 10409457 (Version 2)
Quarter: 2014Q4

REPORT INFORMATION
  Report Type: Spontaneous
  Country: US (occurrence: None)
  Receive Date: 20140604
  Receipt Date: 20141010
  Transmission Date: 20150528
  Serious: Yes (Other)
  Sender: FDA-Public Use
  Company Number: 163-POMAL-14024261

PATIENT
  Age: 59 Year
  Sex: Male
  Weight: 97.52 kg

DRUGS (17)
  1. POMALYST [Suspect]
     Active Substance: POMALIDOMIDE
     Indication: PLASMA CELL MYELOMA
     Dosage: 1 IN 1 D
     Route: 048
     Dates: start: 20130801
  2. ZOMETA [Concomitant]
     Active Substance: ZOLEDRONIC ACID
  3. HYDROCODONE/ACETAMINOPHEN (REMEDEINE) [Concomitant]
  4. ZITHROMAX [Concomitant]
     Active Substance: AZITHROMYCIN DIHYDRATE
  5. FLUOXETINE HCL [Concomitant]
     Active Substance: FLUOXETINE HYDROCHLORIDE
  6. OMEPRAZOLE (OMEPRAZOLE) [Concomitant]
     Active Substance: OMEPRAZOLE
  7. ACYCLOVIR (ACICLOVIR) [Concomitant]
  8. CYCLOBENZAPRINE HCL (CYCLOBENZAPRINE) [Concomitant]
     Active Substance: CYCLOBENZAPRINE HYDROCHLORIDE
  9. GABAPENTIN (GABAPENTIN) [Concomitant]
     Active Substance: GABAPENTIN
  10. FOLIC ACID (FOLIC ACID) [Concomitant]
     Active Substance: FOLIC ACID
  11. LORAZEPAM (LORAZEPAM) [Concomitant]
     Active Substance: LORAZEPAM
  12. VELCADE [Concomitant]
     Active Substance: BORTEZOMIB
  13. VITAMIN B COMPLEX (B-COMPLEX ^LECIVA^) [Concomitant]
  14. DEXAMETHASONE (DEXAMETHASONE) [Concomitant]
     Active Substance: DEXAMETHASONE
  15. VITAMIN D3 [Concomitant]
     Active Substance: CHOLECALCIFEROL
  16. VITAMIN E [Concomitant]
     Active Substance: .ALPHA.-TOCOPHEROL
  17. MULTIVITAMINS [Concomitant]
     Active Substance: VITAMINS

REACTIONS (6)
  - Sinus congestion [None]
  - Dyspnoea [None]
  - Contusion [None]
  - Tinnitus [None]
  - Respiratory tract congestion [None]
  - Fatigue [None]

NARRATIVE: CASE EVENT DATE: 20140102
